FAERS Safety Report 9124587 (Version 1)
Quarter: 2013Q1

REPORT INFORMATION
  Report Type: Report from Study
  Country: GW (occurrence: GW)
  Receive Date: 20130227
  Receipt Date: 20130227
  Transmission Date: 20140127
  Serious: Yes (Hospitalization)
  Sender: FDA-Public Use
  Company Number: GW-ABBOTT-13P-071-1051438-00

PATIENT
  Age: 27 Year
  Sex: Male

DRUGS (5)
  1. ALUVIA [Suspect]
     Indication: HIV INFECTION
     Dosage: DAILY DOSE: 800/200 MG UNIT DOSE: 200/50 MG
     Route: 048
     Dates: start: 20130128
  2. TENOFOVIR [Concomitant]
     Indication: HIV INFECTION
     Route: 048
     Dates: start: 20130128
  3. LAMIVUDINE [Concomitant]
     Indication: HIV INFECTION
     Route: 048
     Dates: start: 20130128
  4. COTRIMOXAZOLE [Concomitant]
     Indication: PROPHYLAXIS
     Route: 048
     Dates: start: 20130128
  5. FOLIC ACID [Concomitant]
     Indication: VITAMIN SUPPLEMENTATION
     Route: 048
     Dates: start: 20130128

REACTIONS (2)
  - Paralysis [Unknown]
  - VIIth nerve paralysis [Unknown]
